FAERS Safety Report 5046134-2 (Version None)
Quarter: 2006Q3

REPORT INFORMATION
  Report Type: 
  Country: None (occurrence: None)
  Receive Date: 20060707
  Receipt Date: 20060707
  Transmission Date: 20061208
  Serious: Yes (Life-Threatening, Hospitalization)
  Sender: FDA-Public Use
  Company Number: None

PATIENT
  Sex: Male
  Weight: 113 kg

DRUGS (4)
  1. GADOLINIUM MRI CONTRAST DYE [Suspect]
     Indication: ABSCESS
     Dates: start: 20060425, end: 20060425
  2. GADOLINIUM MRI CONTRAST DYE [Suspect]
     Indication: MUSCLE NECROSIS
     Dates: start: 20060425, end: 20060425
  3. GADOLINIUM MRI CONTRAST DYE [Suspect]
     Indication: ABSCESS
     Dates: start: 20060521, end: 20060521
  4. GADOLINIUM MRI CONTRAST DYE [Suspect]
     Indication: MUSCLE NECROSIS
     Dates: start: 20060521, end: 20060521

REACTIONS (11)
  - CASTLEMAN'S DISEASE [None]
  - CELLULITIS [None]
  - GAIT DISTURBANCE [None]
  - HODGKIN'S DISEASE [None]
  - MOBILITY DECREASED [None]
  - MUSCLE NECROSIS [None]
  - MYOSITIS [None]
  - NEPHROGENIC FIBROSING DERMOPATHY [None]
  - NON-HODGKIN'S LYMPHOMA [None]
  - OEDEMA PERIPHERAL [None]
  - PAIN IN EXTREMITY [None]
